FAERS Safety Report 8520399-4 (Version None)
Quarter: 2012Q3

REPORT INFORMATION
  Report Type: 
  Country: None (occurrence: None)
  Receive Date: 20120719
  Receipt Date: 20120712
  Transmission Date: 20120928
  Serious: Yes (Hospitalization)
  Sender: FDA-Public Use
  Company Number: ID-ASTELLAS-2012JP006460

PATIENT
  Age: 65 Year
  Sex: Female

DRUGS (2)
  1. SOLIFENACIN SUCCINATE [Suspect]
     Dosage: 10 MG, UID/QD
     Route: 048
     Dates: start: 20120706
  2. OFLOXACIN [Concomitant]
     Route: 065

REACTIONS (3)
  - SOMNOLENCE [None]
  - BRADYCARDIA [None]
  - APATHY [None]
